FAERS Safety Report 8174218-9 (Version None)
Quarter: 2012Q1

REPORT INFORMATION
  Report Type: 
  Country: None (occurrence: None)
  Receive Date: 20120224
  Receipt Date: 20120221
  Transmission Date: 20120608
  Serious: Yes (Disabling, Other)
  Sender: FDA-Public Use
  Company Number: GER/UKI/12/0023107

PATIENT
  Age: 68 Year
  Sex: Female
  Weight: 65 kg

DRUGS (5)
  1. AMOROLFINE (AMOROLFINE) [Concomitant]
  2. TERBINAFINE HCL [Suspect]
     Indication: ONYCHOMYCOSIS
     Dosage: 250 MG
     Dates: start: 20111102
  3. GLUCOSAMINE (GLUCOSAMINE) [Interacting]
  4. IBUPROFEN (IBUPROIFEN) [Concomitant]
  5. ACETAMINOPHEN [Concomitant]

REACTIONS (3)
  - MEMORY IMPAIRMENT [None]
  - DYSGRAPHIA [None]
  - COGNITIVE DISORDER [None]
